FAERS Safety Report 6960498-1 (Version None)
Quarter: 2010Q3

REPORT INFORMATION
  Report Type: 
  Country: None (occurrence: None)
  Receive Date: 20100901
  Receipt Date: 20100819
  Transmission Date: 20110219
  Serious: Yes (Other)
  Sender: FDA-Public Use
  Company Number: JP-JNJFOC-20100807823

PATIENT
  Age: 12 Year
  Sex: Male

DRUGS (4)
  1. TOPIRAMATE [Suspect]
     Indication: PARTIAL SEIZURES
     Route: 048
  2. TOPIRAMATE [Suspect]
     Route: 048
  3. SELENICA-R [Suspect]
     Indication: EPILEPSY
     Route: 048
  4. TEGRETOL [Suspect]
     Indication: EPILEPSY
     Route: 065

REACTIONS (1)
  - SYSTEMIC LUPUS ERYTHEMATOSUS [None]
